FAERS Safety Report 4587682-9 (Version None)
Quarter: 2005Q1

REPORT INFORMATION
  Report Type: 
  Country: None (occurrence: None)
  Receive Date: 20050215
  Receipt Date: 20050201
  Transmission Date: 20050727
  Serious: Yes (Hospitalization)
  Sender: FDA-Public Use
  Company Number: GXKR2005US00525

PATIENT
  Age: 78 Year
  Sex: Female

DRUGS (1)
  1. TICLOPIDINE HCL (NGX) (TICLOPIDINE) TABLET [Suspect]
     Dates: start: 19980601

REACTIONS (8)
  - BONE MARROW DEPRESSION [None]
  - DELIRIUM [None]
  - DIARRHOEA [None]
  - FAT EMBOLISM [None]
  - NAUSEA [None]
  - PULMONARY OEDEMA [None]
  - RENAL FAILURE ACUTE [None]
  - VOMITING [None]
